FAERS Safety Report 9261369 (Version 1)
Quarter: 2013Q2

REPORT INFORMATION
  Report Type: Spontaneous
  Country: US (occurrence: US)
  Receive Date: 20130429
  Receipt Date: 20130429
  Transmission Date: 20140414
  Serious: Yes (Hospitalization)
  Sender: FDA-Public Use
  Company Number: US-AMGEN-USASP2012061081

PATIENT
  Age: 59 Year
  Sex: Male
  Weight: 153 kg

DRUGS (5)
  1. SENSIPAR [Suspect]
     Indication: HYPERPARATHYROIDISM SECONDARY
     Dosage: 90 MG, UNK
     Dates: start: 2011
  2. SENSIPAR [Suspect]
     Dosage: 120 MG, QD
     Dates: start: 20120820
  3. HECTOROL [Concomitant]
     Dosage: 24 MUG, UNK
  4. HECTOROL [Concomitant]
     Dosage: 20 MUG, UNK
     Dates: start: 20120820
  5. BACLOFEN [Concomitant]
     Dosage: UNK
     Dates: start: 20120907

REACTIONS (4)
  - Diarrhoea [Not Recovered/Not Resolved]
  - Nausea [Recovered/Resolved]
  - Hiccups [Not Recovered/Not Resolved]
  - Blood calcium increased [Not Recovered/Not Resolved]
